FAERS Safety Report 17889631 (Version 1)
Quarter: 2020Q2

REPORT INFORMATION
  Report Type: Spontaneous
  Country: FR (occurrence: FR)
  Receive Date: 20200612
  Receipt Date: 20200612
  Transmission Date: 20200714
  Serious: Yes (Life-Threatening, Hospitalization, Other)
  Sender: FDA-Public Use
  Company Number: FR-MACLEODS PHARMACEUTICALS US LTD-MAC2020026779

PATIENT

DRUGS (6)
  1. RAMIPRIL TABLET [Suspect]
     Active Substance: RAMIPRIL
     Indication: HYPERTENSION
     Dosage: 1 DOSAGE FORM, QD
     Route: 048
  2. RAMIPRIL TABLET [Suspect]
     Active Substance: RAMIPRIL
     Dosage: 15 DOSAGE FORM, SINGLE, 150MG (15 X10MG TABLET)
     Route: 048
  3. AMLODIPINE 10 MG TABLET [Suspect]
     Active Substance: AMLODIPINE BESYLATE
     Indication: HYPERTENSION
     Dosage: 1 DOSAGE FORM, QD
     Route: 048
  4. BISOPROLOL 10 MG TABLETS [Suspect]
     Active Substance: BISOPROLOL
     Indication: HYPERTENSION
     Dosage: 2 DOSAGE FORM, QD
     Route: 048
  5. AMLODIPINE 10 MG TABLET [Suspect]
     Active Substance: AMLODIPINE BESYLATE
     Dosage: 45 DOSAGE FORM, SINGLE, 450MG (45X10 TABLET)
     Route: 048
  6. BISOPROLOL 10 MG TABLETS [Suspect]
     Active Substance: BISOPROLOL
     Dosage: 16 DOSAGE FORM, SINGLE, 160 MG (16 X 10 MG TABLETS)
     Route: 048

REACTIONS (8)
  - Vasoplegia syndrome [Recovered/Resolved]
  - Sinus bradycardia [Recovering/Resolving]
  - Renal failure [Recovering/Resolving]
  - Acute kidney injury [Recovering/Resolving]
  - Drug level increased [Recovering/Resolving]
  - Pneumonia aspiration [Recovering/Resolving]
  - Intentional overdose [Recovering/Resolving]
  - Toxicity to various agents [Recovering/Resolving]
